FAERS Safety Report 8802912 (Version 1)
Quarter: 2012Q4

REPORT INFORMATION
  Report Type: 
  Country: FR (occurrence: FR)
  Receive Date: 20120924
  Receipt Date: 20120924
  Transmission Date: 20130627
  Serious: Yes (Hospitalization)
  Sender: FDA-Public Use
  Company Number: FR-PFIZER INC-2012231880

PATIENT
  Age: 89 Year
  Sex: Female

DRUGS (6)
  1. ALDACTAZINE [Suspect]
     Indication: HYPERTENSION
     Dosage: 1x/day
     Route: 048
  2. RAMIPRIL [Suspect]
     Indication: HYPERTENSION
     Dosage: 1.25 mg, 1x/day
     Route: 048
  3. PANTOPRAZOLE [Suspect]
     Dosage: 40 mg, 1x/day
     Route: 048
  4. ALLOPURINOL [Suspect]
     Indication: HYPERURICAEMIA
     Dosage: 100 mg, 1x/day
     Route: 048
     Dates: start: 201205, end: 201206
  5. MIANSERIN HYDROCHLORIDE [Suspect]
     Indication: DEPRESSION
     Dosage: 1 DF, 1x/day
     Route: 048
  6. FUROSEMIDE [Suspect]
     Indication: HYPERTENSION
     Dosage: 20 mg, 1x/day
     Route: 048

REACTIONS (5)
  - Drug reaction with eosinophilia and systemic symptoms [Recovered/Resolved]
  - Renal failure acute [None]
  - Hypotension [None]
  - Hepatocellular injury [None]
  - Cholestasis [None]
